FAERS Safety Report 16722902 (Version 1)
Quarter: 2019Q3

REPORT INFORMATION
  Report Type: Spontaneous
  Country: US (occurrence: US)
  Receive Date: 20190821
  Receipt Date: 20190821
  Transmission Date: 20191005
  Serious: No
  Sender: FDA-Public Use
  Company Number: US-ELI_LILLY_AND_COMPANY-US201908000424

PATIENT
  Sex: Female

DRUGS (1)
  1. BASAGLAR [Suspect]
     Active Substance: INSULIN GLARGINE
     Indication: DIABETES MELLITUS
     Dosage: 29 U, DAILY
     Route: 058
     Dates: start: 201904

REACTIONS (7)
  - Hypertension [Unknown]
  - Blood glucose increased [Unknown]
  - Sneezing [Unknown]
  - Cough [Unknown]
  - Tooth loss [Unknown]
  - Speech disorder [Unknown]
  - Visual impairment [Unknown]

NARRATIVE: CASE EVENT DATE: 201905
